FAERS Safety Report 9124984 (Version 1)
Quarter: 2013Q1

REPORT INFORMATION
  Report Type: Spontaneous
  Country: ES (occurrence: ES)
  Receive Date: 20130117
  Receipt Date: 20130117
  Transmission Date: 20140127
  Serious: Yes (Other)
  Sender: FDA-Public Use
  Company Number: ES-ELI_LILLY_AND_COMPANY-ES201301003590

PATIENT
  Sex: Female
  Weight: 37 kg

DRUGS (1)
  1. FORSTEO [Suspect]

REACTIONS (2)
  - Loss of consciousness [Unknown]
  - Syncope [Unknown]
